FAERS Safety Report 18938091 (Version 1)
Quarter: 2021Q1

REPORT INFORMATION
  Report Type: Spontaneous
  Country: US (occurrence: US)
  Receive Date: 20210224
  Receipt Date: 20210224
  Transmission Date: 20210420
  Serious: Yes (Other)
  Sender: FDA-Public Use
  Company Number: US-FOUNDATIONCONSUMERHC-2021-US-003562

PATIENT
  Age: 73 Year
  Sex: Male
  Weight: 84.37 kg

DRUGS (1)
  1. BRONKAID DUAL ACTION FORMULA [Suspect]
     Active Substance: EPHEDRINE SULFATE\GUAIFENESIN
     Indication: ASTHMA
     Dosage: 1 CAPSULE
     Route: 048
     Dates: start: 20170201, end: 20170201

REACTIONS (5)
  - Swollen tongue [Unknown]
  - Hypersensitivity [Unknown]
  - Dyspnoea [Unknown]
  - Blood pressure increased [Recovered/Resolved]
  - Heart rate increased [Recovered/Resolved]

NARRATIVE: CASE EVENT DATE: 20170201
